FAERS Safety Report 5759387-X (Version None)
Quarter: 2008Q2

REPORT INFORMATION
  Report Type: 
  Country: None (occurrence: None)
  Receive Date: 20080507
  Receipt Date: 20070626
  Transmission Date: 20081010
  Serious: Yes (Other)
  Sender: FDA-Public Use
  Company Number: 230190M07USA

PATIENT
  Age: 57 Year
  Sex: Female

DRUGS (13)
  1. REBIF [Suspect]
     Indication: MULTIPLE SCLEROSIS
     Dosage: 44 MCG, 3 IN 1 WEEKS, SUBCUTANEOUS
     Route: 058
     Dates: start: 20060713, end: 20070601
  2. VICODIN [Suspect]
     Indication: PAIN
     Dosage: 2 DOSAGE FORMS, AS REQUIRED, ORAL
     Route: 048
     Dates: end: 20070601
  3. CARBAMAZEPINE [Concomitant]
  4. WELLBUTRIN SR [Concomitant]
  5. ATENOLOL [Concomitant]
  6. OMEPRAZOLE [Concomitant]
  7. POTASSIUM CHLORIDE [Concomitant]
  8. NIFEDICAL XL (NIFEDIPINE) [Concomitant]
  9. HYDROCHLOROTHIAZIDE [Concomitant]
  10. GABAPENTIN [Concomitant]
  11. PNEUMOVAX 23 [Concomitant]
  12. TRIAMPHENYLONE (ALL OTHER THERAPEUTIC PRIODUCTS) [Concomitant]
  13. OXYCODONE HCL [Concomitant]

REACTIONS (1)
  - LIVER FUNCTION TEST ABNORMAL [None]
